FAERS Safety Report 7802314-1 (Version None)
Quarter: 2011Q4

REPORT INFORMATION
  Report Type: 
  Country: None (occurrence: None)
  Receive Date: 20111007
  Receipt Date: 20110928
  Transmission Date: 20120403
  Serious: Yes (Hospitalization, Other)
  Sender: FDA-Public Use
  Company Number: JP-JNJFOC-20110909737

PATIENT
  Age: 84 Year
  Sex: Male

DRUGS (3)
  1. ALCOHOL [Suspect]
     Indication: PRODUCT USED FOR UNKNOWN INDICATION
     Route: 048
  2. GALANTAMINE HYDROBROMIDE [Suspect]
     Indication: DEMENTIA ALZHEIMER'S TYPE
     Route: 048
     Dates: start: 20110913, end: 20110915
  3. ZOLPIDEM [Concomitant]
     Route: 048

REACTIONS (3)
  - INJURY [None]
  - PORIOMANIA [None]
  - FALL [None]
